FAERS Safety Report 5875882-7 (Version None)
Quarter: 2008Q3

REPORT INFORMATION
  Report Type: 
  Country: None (occurrence: None)
  Receive Date: 20080905
  Receipt Date: 20080825
  Transmission Date: 20090109
  Serious: Yes (Other)
  Sender: FDA-Public Use
  Company Number: SP-2007-003449

PATIENT
  Age: 60 Year
  Sex: Female
  Weight: 99 kg

DRUGS (3)
  1. OLMESARTAN MEDOXOMIL [Suspect]
     Indication: HYPERTENSION
     Dosage: (1 IN 1 D), PER ORAL
     Route: 048
     Dates: start: 20060901, end: 20060925
  2. AMOXICILLIN [Concomitant]
  3. LERCANIDIPINE HYDROCHLORIDE (LERCANIDIPINE HYDROCHLORIDE)(TABLET)(LERC [Concomitant]

REACTIONS (1)
  - DEPRESSED MOOD [None]
